FAERS Safety Report 5004362-6 (Version None)
Quarter: 2006Q2

REPORT INFORMATION
  Report Type: 
  Country: None (occurrence: None)
  Receive Date: 20060517
  Receipt Date: 20060510
  Transmission Date: 20061013
  Serious: Yes (Death, Life-Threatening, Other)
  Sender: FDA-Public Use
  Company Number: JP-JPN-A200601518

PATIENT
  Age: 40 Year
  Sex: Female

DRUGS (11)
  1. FLOLAN [Suspect]
     Indication: PULMONARY HYPERTENSION
     Route: 042
     Dates: start: 19991025, end: 20040303
  2. FUROSEMIDE [Concomitant]
  3. SPIRONOLACTONE [Concomitant]
     Route: 048
  4. DIART [Concomitant]
     Route: 048
  5. FLUITRAN [Concomitant]
     Route: 048
  6. BIOFERMIN R [Concomitant]
     Route: 048
  7. AMIODARONE [Concomitant]
     Route: 048
  8. GOODMIN [Concomitant]
     Route: 048
     Dates: start: 20040210, end: 20040227
  9. HALCION [Concomitant]
     Route: 048
     Dates: end: 20040209
  10. FESIN [Concomitant]
     Dosage: 40MG PER DAY
     Route: 042
     Dates: start: 20040204, end: 20040227
  11. TAKEPRON [Concomitant]
     Dosage: 30MG PER DAY
     Route: 048
     Dates: start: 20040228, end: 20040302

REACTIONS (7)
  - CARDIAC FAILURE [None]
  - DIARRHOEA [None]
  - MALAISE [None]
  - PRODUCTIVE COUGH [None]
  - UPPER GASTROINTESTINAL HAEMORRHAGE [None]
  - UPPER RESPIRATORY TRACT INFECTION [None]
  - VOMITING [None]
